FAERS Safety Report 9528533 (Version 1)
Quarter: 2013Q3

REPORT INFORMATION
  Report Type: Spontaneous
  Country: US (occurrence: US)
  Receive Date: 20130917
  Receipt Date: 20130917
  Transmission Date: 20140515
  Serious: No
  Sender: FDA-Public Use
  Company Number: US-009507513-1309USA006248

PATIENT
  Age: 69 Year
  Sex: Male

DRUGS (2)
  1. JANUVIA [Suspect]
     Indication: TYPE 2 DIABETES MELLITUS
     Dosage: 100 MG, QD
     Route: 048
     Dates: start: 201203
  2. METFORMIN [Concomitant]
     Dosage: 100 MG, BID

REACTIONS (2)
  - Blood glucose increased [Not Recovered/Not Resolved]
  - Dawn phenomenon [Not Recovered/Not Resolved]
